FAERS Safety Report 8444355-X (Version None)
Quarter: 2012Q2

REPORT INFORMATION
  Report Type: 
  Country: None (occurrence: None)
  Receive Date: 20120611
  Receipt Date: 20120514
  Transmission Date: 20120825
  Serious: Yes (Life-Threatening)
  Sender: FDA-Public Use
  Company Number: 001238968A

PATIENT
  Age: 30 Year
  Sex: Male

DRUGS (5)
  1. PROACTIV 30 DAY KIT [Suspect]
     Indication: ACNE
     Dosage: TWICE DAILY DERMAL
     Dates: start: 20120511, end: 20120512
  2. MULTI-VITAMINS [Concomitant]
  3. ATIVAN [Concomitant]
  4. LISINOPRIL [Concomitant]
  5. ZOLOFT [Concomitant]

REACTIONS (1)
  - HYPERSENSITIVITY [None]
